FAERS Safety Report 24871586 (Version 1)
Quarter: 2025Q1

REPORT INFORMATION
  Report Type: Spontaneous
  Country: IT (occurrence: IT)
  Receive Date: 20250122
  Receipt Date: 20250122
  Transmission Date: 20250409
  Serious: Yes (Death, Other)
  Sender: SANOFI AVENTIS
  Company Number: IT-DialogSolutions-SAAVPROD-PI735680-C1

PATIENT
  Age: 55 Year
  Sex: Male

DRUGS (1)
  1. ZOLPIDEM TARTRATE [Suspect]
     Active Substance: ZOLPIDEM TARTRATE
     Indication: Completed suicide

REACTIONS (4)
  - Pulmonary oedema [Fatal]
  - Toxicity to various agents [Fatal]
  - Discharge [Fatal]
  - Emphysema [Fatal]
